FAERS Safety Report 20393720 (Version 1)
Quarter: 2022Q1

REPORT INFORMATION
  Report Type: Spontaneous
  Country: AT (occurrence: US)
  Receive Date: 20220128
  Receipt Date: 20220128
  Transmission Date: 20220423
  Serious: Yes (Death, Other)
  Sender: FDA-Public Use
  Company Number: AT-GILEAD-2022-0567334

PATIENT
  Age: 6 Decade
  Sex: Male

DRUGS (3)
  1. REMDESIVIR [Suspect]
     Active Substance: REMDESIVIR
     Indication: COVID-19 pneumonia
     Dosage: UNK
     Route: 065
  2. DEXAMETHASONE [Concomitant]
     Active Substance: DEXAMETHASONE
  3. OXYGEN [Concomitant]
     Active Substance: OXYGEN

REACTIONS (3)
  - Death [Fatal]
  - Aspergillus infection [Unknown]
  - Oxygen consumption increased [Unknown]
